FAERS Safety Report 6134014-0 (Version None)
Quarter: 2009Q1

REPORT INFORMATION
  Report Type: 
  Country: None (occurrence: None)
  Receive Date: 20090217
  Receipt Date: 20080404
  Transmission Date: 20090719
  Serious: No
  Sender: FDA-Public Use
  Company Number: AEUSA200800072

PATIENT
  Age: 66 Year
  Sex: Female
  Weight: 89 kg

DRUGS (2)
  1. PROLASTIN [Suspect]
     Indication: ALPHA-1 ANTI-TRYPSIN DEFICIENCY
     Dosage: 4000 MG; 1X; IV
     Route: 042
     Dates: start: 20051201, end: 20080404
  2. OXYGEN [Concomitant]

REACTIONS (2)
  - DISORIENTATION [None]
  - DIZZINESS [None]
